FAERS Safety Report 6074241-4 (Version None)
Quarter: 2009Q1

REPORT INFORMATION
  Report Type: 
  Country: None (occurrence: None)
  Receive Date: 20090211
  Receipt Date: 20090128
  Transmission Date: 20090719
  Serious: Yes (Death, Other)
  Sender: FDA-Public Use
  Company Number: FR-GENENTECH-275616

PATIENT
  Sex: Male

DRUGS (8)
  1. RITUXIMAB [Suspect]
     Indication: NON-HODGKIN'S LYMPHOMA
     Dosage: 375 MG/KG, QD
     Route: 042
     Dates: start: 20081110, end: 20081201
  2. VINCRISTINE [Suspect]
     Indication: NON-HODGKIN'S LYMPHOMA
     Dosage: 14 UNIT, QD
     Route: 042
     Dates: start: 20081111, end: 20081202
  3. METHOTREXATE [Suspect]
     Indication: NON-HODGKIN'S LYMPHOMA
     Dosage: 3000 UNIT, QD
     Route: 042
     Dates: start: 20081111, end: 20081202
  4. DOXORUBICIN HCL [Suspect]
     Indication: NON-HODGKIN'S LYMPHOMA
     Dosage: 60 UNIT, QD
     Route: 042
     Dates: start: 20081112, end: 20081203
  5. CYCLOPHOSPHAMIDE [Suspect]
     Indication: NON-HODGKIN'S LYMPHOMA
     Dosage: 250 MG/M2, BID
     Route: 042
     Dates: start: 20081112, end: 20081205
  6. FOLINIC ACID [Suspect]
     Indication: NON-HODGKIN'S LYMPHOMA
     Dosage: 24 MG, QID
     Route: 042
     Dates: start: 20081112, end: 20081220
  7. PREDNISONE [Suspect]
     Indication: NON-HODGKIN'S LYMPHOMA
     Dosage: 60 UNIT, QD
     Route: 048
     Dates: start: 20081110, end: 20081205
  8. DEPOCYT [Suspect]
     Indication: NON-HODGKIN'S LYMPHOMA
     Dosage: 50 UNIT, QD
     Route: 037
     Dates: start: 20081112, end: 20081203

REACTIONS (3)
  - BACILLUS INFECTION [None]
  - FEBRILE NEUTROPENIA [None]
  - RENAL FAILURE [None]
